FAERS Safety Report 7536139-1 (Version None)
Quarter: 2011Q2

REPORT INFORMATION
  Report Type: 
  Country: None (occurrence: None)
  Receive Date: 20110608
  Receipt Date: 20110608
  Transmission Date: 20111010
  Serious: No
  Sender: FDA-Public Use
  Company Number: None

PATIENT
  Sex: Female

DRUGS (1)
  1. ENBREL [Suspect]
     Indication: RHEUMATOID ARTHRITIS
     Dosage: 50MG QW SQ
     Route: 058
     Dates: start: 20110521, end: 20110528

REACTIONS (5)
  - FEELING ABNORMAL [None]
  - LYMPHADENOPATHY [None]
  - RETCHING [None]
  - TONGUE DISORDER [None]
  - URINARY TRACT INFECTION [None]
